FAERS Safety Report 9848286 (Version 2)
Quarter: 2014Q1

REPORT INFORMATION
  Report Type: Spontaneous
  Country: US (occurrence: US)
  Receive Date: 20140128
  Receipt Date: 20140131
  Transmission Date: 20141002
  Serious: No
  Sender: FDA-Public Use
  Company Number: US-BAYER-2014-014303

PATIENT
  Sex: Male
  Weight: 82.99 kg

DRUGS (1)
  1. BETASERON [Suspect]
     Indication: MULTIPLE SCLEROSIS
     Dosage: UNK
     Dates: start: 1991, end: 201308

REACTIONS (4)
  - Mobility decreased [None]
  - Headache [None]
  - Feeling abnormal [None]
  - Weight decreased [None]
